FAERS Safety Report 14267380 (Version 1)
Quarter: 2017Q4

REPORT INFORMATION
  Report Type: Spontaneous
  Country: US (occurrence: US)
  Receive Date: 20171208
  Receipt Date: 20171208
  Transmission Date: 20180321
  Serious: Yes (Life-Threatening)
  Sender: FDA-Public Use
  Company Number: None

PATIENT
  Age: 56 Year
  Sex: Female
  Weight: 56.25 kg

DRUGS (2)
  1. SIMPLY SALINE NASAL MIST ALLERY AND SINUS RELIEF [Suspect]
     Active Substance: SODIUM CHLORIDE
     Indication: NASAL CONGESTION
     Dosage: ?          OTHER ROUTE:NASAL SPRAY?
     Route: 045
     Dates: start: 20171208, end: 20171208
  2. LEVOTHYROXIN [Concomitant]
     Active Substance: LEVOTHYROXINE

REACTIONS (7)
  - Rash [None]
  - Bronchospasm [None]
  - Product formulation issue [None]
  - Dyspnoea [None]
  - Hypersensitivity [None]
  - Rash erythematous [None]
  - Product contamination [None]

NARRATIVE: CASE EVENT DATE: 20171208
